FAERS Safety Report 20097753 (Version 2)
Quarter: 2022Q3

REPORT INFORMATION
  Report Type: Report from Study
  Country: ES (occurrence: ES)
  Receive Date: 20211122
  Receipt Date: 20220830
  Transmission Date: 20221026
  Serious: Yes (Hospitalization, Other)
  Sender: FDA-Public Use
  Company Number: ES-TAKEDA-2021TUS073575

PATIENT
  Age: 2 Year
  Sex: Male

DRUGS (13)
  1. TEDUGLUTIDE [Suspect]
     Active Substance: TEDUGLUTIDE
     Indication: Short-bowel syndrome
     Dosage: 0.350 MILLIGRAM, QD
     Route: 065
     Dates: start: 202012, end: 202108
  2. TEDUGLUTIDE [Suspect]
     Active Substance: TEDUGLUTIDE
     Indication: Short-bowel syndrome
     Dosage: 0.350 MILLIGRAM, QD
     Route: 065
     Dates: start: 202012, end: 202108
  3. TEDUGLUTIDE [Suspect]
     Active Substance: TEDUGLUTIDE
     Indication: Short-bowel syndrome
     Dosage: 0.350 MILLIGRAM, QD
     Route: 065
     Dates: start: 202012, end: 202108
  4. TEDUGLUTIDE [Suspect]
     Active Substance: TEDUGLUTIDE
     Indication: Short-bowel syndrome
     Dosage: 0.350 MILLIGRAM, QD
     Route: 065
     Dates: start: 202012, end: 202108
  5. MORPHINE [Concomitant]
     Active Substance: MORPHINE
     Indication: Pain
     Dosage: 0.40 MILLIGRAM, TID
     Route: 048
     Dates: start: 20201217
  6. CHLORPROMAZINE [Concomitant]
     Active Substance: CHLORPROMAZINE
     Indication: Palliative care
     Dosage: 8.00 MILLIGRAM, TID
     Route: 048
  7. VITAMIN K [Concomitant]
     Active Substance: PHYTONADIONE
     Dosage: 2.50 MILLIGRAM, QD
     Route: 042
  8. OMEPRAZOLE [Concomitant]
     Active Substance: OMEPRAZOLE
     Indication: Gastric disorder
     Dosage: 6 MILLIGRAM, QD
     Route: 048
  9. FERROGLYCINE SULFATE [Concomitant]
     Active Substance: FERROGLYCINE SULFATE
     Dosage: 60 MILLIGRAM, QD
     Route: 048
     Dates: start: 20220404
  10. HIBOR [Concomitant]
     Indication: Thrombosis
     Dosage: 2000 INTERNATIONAL UNIT
     Route: 058
     Dates: start: 20211205
  11. LEVOTHYROXINE [Concomitant]
     Active Substance: LEVOTHYROXINE
     Indication: Hypothyroidism
     Dosage: 75 MICROGRAM, QD
     Route: 048
     Dates: start: 20211205
  12. DOMPERIDONE [Concomitant]
     Active Substance: DOMPERIDONE
     Indication: Nausea
     Dosage: 2 MILLIGRAM, TID
     Route: 048
     Dates: start: 20210825
  13. DOMPERIDONE [Concomitant]
     Active Substance: DOMPERIDONE
     Indication: Vomiting

REACTIONS (1)
  - Device related bacteraemia [Recovered/Resolved]

NARRATIVE: CASE EVENT DATE: 20210825
